FAERS Safety Report 12638484 (Version 8)
Quarter: 2019Q4

REPORT INFORMATION
  Report Type: Spontaneous
  Country: US (occurrence: US)
  Receive Date: 20160809
  Receipt Date: 20191015
  Transmission Date: 20200122
  Serious: Yes (Other)
  Sender: FDA-Public Use
  Company Number: US-SA-2016SA131902

PATIENT
  Age: 71 Year
  Sex: Female
  Weight: 46.2 kg

DRUGS (19)
  1. ALIROCUMAB PREFILLED PEN [Suspect]
     Active Substance: ALIROCUMAB
     Dates: start: 20160614
  2. LORAZEPAM. [Concomitant]
     Active Substance: LORAZEPAM
  3. PRALUENT [Suspect]
     Active Substance: ALIROCUMAB
     Dosage: 75 MG,QOW
     Route: 058
  4. ALIROCUMAB PREFILLED PEN [Suspect]
     Active Substance: ALIROCUMAB
     Dates: start: 20170610
  5. SYNTHROID [Concomitant]
     Active Substance: LEVOTHYROXINE SODIUM
  6. LISINOPRIL. [Concomitant]
     Active Substance: LISINOPRIL
  7. VITAMIN D NOS [Concomitant]
     Active Substance: VITAMIN D NOS
  8. DILTIAZEM. [Concomitant]
     Active Substance: DILTIAZEM
  9. PRALUENT [Suspect]
     Active Substance: ALIROCUMAB
     Dosage: 150 MG, QOW
     Route: 058
     Dates: start: 20170610
  10. CALCIUM [Concomitant]
     Active Substance: CALCIUM
  11. MAGNESIUM [Concomitant]
     Active Substance: MAGNESIUM
  12. ASPIRIN [ACETYLSALICYLIC ACID] [Concomitant]
     Active Substance: ASPIRIN
  13. CLONIDINE. [Concomitant]
     Active Substance: CLONIDINE
  14. PLAVIX [Concomitant]
     Active Substance: CLOPIDOGREL BISULFATE
  15. CRESTOR [Concomitant]
     Active Substance: ROSUVASTATIN CALCIUM
  16. PRALUENT [Suspect]
     Active Substance: ALIROCUMAB
     Indication: HYPERCHOLESTEROLAEMIA
     Dosage: 150 MG,QOW
     Route: 058
     Dates: start: 20160610
  17. ALIROCUMAB PREFILLED PEN [Suspect]
     Active Substance: ALIROCUMAB
     Indication: HYPERCHOLESTEROLAEMIA
     Dates: start: 20160614
  18. WARFARIN [Concomitant]
     Active Substance: WARFARIN
  19. FUROSEMIDE. [Concomitant]
     Active Substance: FUROSEMIDE

REACTIONS (14)
  - High density lipoprotein increased [Unknown]
  - Drug ineffective [Unknown]
  - Injection site pain [Recovered/Resolved]
  - Wheezing [Unknown]
  - Lethargy [Unknown]
  - Diarrhoea [Unknown]
  - Pulmonary congestion [Unknown]
  - Rotator cuff syndrome [Unknown]
  - Viral infection [Recovering/Resolving]
  - Flatulence [Unknown]
  - Injection site bruising [Recovered/Resolved]
  - Unevaluable event [Recovering/Resolving]
  - Injection site haematoma [Recovered/Resolved]
  - Device malfunction [Unknown]

NARRATIVE: CASE EVENT DATE: 2016
